FAERS Safety Report 10080355 (Version 3)
Quarter: 2014Q2

REPORT INFORMATION
  Report Type: Report from Study
  Country: IL (occurrence: IL)
  Receive Date: 20140415
  Receipt Date: 20140504
  Transmission Date: 20141212
  Serious: Yes (Congenital Anomaly)
  Sender: FDA-Public Use
  Company Number: IL-US-EMD SERONO, INC.-7282724

PATIENT
  Sex: 0

DRUGS (1)
  1. REBIF [Suspect]
     Indication: RELAPSING-REMITTING MULTIPLE SCLEROSIS
     Route: 064
     Dates: start: 2009, end: 20140302

REACTIONS (4)
  - Trisomy 21 [Unknown]
  - Congenital cardiovascular anomaly [Unknown]
  - Foetal malformation [Unknown]
  - Foetal exposure during pregnancy [Recovered/Resolved]
